FAERS Safety Report 21377629 (Version 1)
Quarter: 2022Q3

REPORT INFORMATION
  Report Type: Other
  Country: None (occurrence: IE)
  Receive Date: 20220926
  Receipt Date: 20220926
  Transmission Date: 20221026
  Serious: Yes (Hospitalization, Other)
  Sender: FDA-Public Use
  Company Number: IE-B.Braun Medical Inc.-2133194

PATIENT
  Age: 76 Year
  Sex: Male

DRUGS (2)
  1. CEFUROXIME SODIUM [Suspect]
     Active Substance: CEFUROXIME SODIUM
  2. METRONIDAZOLE [Suspect]
     Active Substance: METRONIDAZOLE

REACTIONS (4)
  - Toxic encephalopathy [Recovered/Resolved]
  - Confusional state [Recovered/Resolved]
  - Myoclonus [Recovered/Resolved]
  - Stupor [Recovered/Resolved]
